FAERS Safety Report 9332983 (Version 2)
Quarter: 2013Q3

REPORT INFORMATION
  Report Type: Spontaneous
  Country: US (occurrence: US)
  Receive Date: 20130606
  Receipt Date: 20130718
  Transmission Date: 20140515
  Serious: Yes (Congenital Anomaly, Other)
  Sender: FDA-Public Use
  Company Number: US-PFIZER INC-2013169859

PATIENT
  Age: 5 Year
  Sex: Male

DRUGS (15)
  1. ZOLOFT [Suspect]
     Dosage: UNK
     Route: 064
     Dates: start: 20030402
  2. SERTRALINE HCL [Suspect]
     Dosage: UNK
     Route: 064
     Dates: start: 20030402
  3. KETOCONAZOLE SHAMPOO [Concomitant]
     Dosage: UNK
     Route: 064
  4. ZELNORM [Concomitant]
     Dosage: UNK
     Route: 064
  5. PROTONIX [Concomitant]
     Dosage: UNK
     Route: 064
  6. ZOFRAN [Concomitant]
     Dosage: UNK
     Route: 064
  7. SULFAMETHOXAZOLE W/TRIMETHOPRIM [Concomitant]
     Dosage: UNK
     Route: 064
  8. PROMETHAZINE [Concomitant]
     Dosage: UNK
     Route: 064
  9. HYOSCYAMINE [Concomitant]
     Dosage: UNK
     Route: 064
  10. METOCLOPRAMIDE [Concomitant]
     Dosage: UNK
     Route: 064
  11. PSEUDOVENT [Concomitant]
     Dosage: UNK
     Route: 064
  12. ZITHROMAX [Concomitant]
     Dosage: UNK
     Route: 064
  13. TRIPHASIL [Concomitant]
     Dosage: UNK
     Route: 064
  14. PRENATAL VITAMINS [Concomitant]
     Dosage: UNK
     Route: 064
  15. NIZORAL SHAMPOO [Concomitant]
     Dosage: UNK
     Route: 064

REACTIONS (6)
  - Maternal exposure during pregnancy [Unknown]
  - Congenital spinal cord anomaly [Unknown]
  - Spina bifida occulta [Unknown]
  - Congenital anomaly [Unknown]
  - Benign neoplasm of spinal cord [Unknown]
  - Abdominal distension [Unknown]
